FAERS Safety Report 9541515 (Version 1)
Quarter: 2013Q3

REPORT INFORMATION
  Report Type: Spontaneous
  Country: US (occurrence: None)
  Receive Date: 20130919
  Receipt Date: 20130919
  Transmission Date: 20140515
  Serious: Yes (Life-Threatening, Hospitalization, Disabling)
  Sender: FDA-Public Use
  Company Number: None

PATIENT
  Age: 74 Year
  Sex: Male
  Weight: 115.2 kg

DRUGS (12)
  1. FEIBA NF [Suspect]
     Indication: FACTOR VIII DEFICIENCY
     Dosage: 9648UNITS (4X25IU VIALS) ONCE IV
     Route: 042
     Dates: start: 20130908, end: 20130911
  2. CARVEDILOL [Concomitant]
  3. FISH OIL [Concomitant]
  4. FUROSEMIDE [Concomitant]
  5. HCTZ [Concomitant]
  6. IMURAN [Concomitant]
  7. LISINOPRIL [Concomitant]
  8. MAGNESIUM OXIDE [Concomitant]
  9. OMEPRAZOLE [Concomitant]
  10. POTASSIUM CHLORIDE [Concomitant]
  11. SPIRONOLACTONE [Concomitant]
  12. TERAZOSIN [Concomitant]

REACTIONS (5)
  - Feeling abnormal [None]
  - Blood pressure increased [None]
  - Ischaemic stroke [None]
  - Acute myocardial infarction [None]
  - Hemiparesis [None]
